FAERS Safety Report 5062696-3 (Version None)
Quarter: 2006Q3

REPORT INFORMATION
  Report Type: 
  Country: None (occurrence: None)
  Receive Date: 20060724
  Receipt Date: 20060724
  Transmission Date: 20061208
  Serious: No
  Sender: FDA-Public Use
  Company Number: None

PATIENT
  Sex: Male
  Weight: 81 kg

DRUGS (3)
  1. CYCLOPHOSPHAMIDE [Suspect]
     Dates: end: 20050815
  2. CYTARABINE [Suspect]
     Dates: start: 20050817
  3. METHOTREXATE [Suspect]
     Dates: start: 20050815

REACTIONS (7)
  - BRONCHOPULMONARY ASPERGILLOSIS [None]
  - CYTOMEGALOVIRUS VIRAEMIA [None]
  - HAEMOPTYSIS [None]
  - LOWER RESPIRATORY TRACT INFECTION FUNGAL [None]
  - MUCORMYCOSIS [None]
  - NEUTROPENIA [None]
  - SEPTIC EMBOLUS [None]
